FAERS Safety Report 4384179-6 (Version None)
Quarter: 2004Q2

REPORT INFORMATION
  Report Type: 
  Country: None (occurrence: None)
  Receive Date: 20040618
  Receipt Date: 20040609
  Transmission Date: 20050107
  Serious: Yes (Other)
  Sender: FDA-Public Use
  Company Number: 2004038751

PATIENT
  Sex: Female

DRUGS (17)
  1. NORVASC [Suspect]
     Indication: ILL-DEFINED DISORDER
     Dosage: 1 IN 1 D
  2. BENADRYL [Suspect]
     Indication: ILL-DEFINED DISORDER
     Dosage: 1 IN 1 D
  3. MECLIZINE [Suspect]
     Indication: NAUSEA
     Dosage: 25 MG
  4. ZANTAC 75 [Suspect]
     Indication: ILL-DEFINED DISORDER
     Dosage: 300 MG (150 MG 2 IN 1 D)
  5. VANCOMYCIN [Concomitant]
  6. LANSOPRAZOLE [Concomitant]
  7. OLMESARTAN MEDOXOMIL (OLMESARTAN MEDOXOMIL) [Concomitant]
  8. LACTINEX (LACTOBACILLUS ACIDOPHILUS, LACTOBACILLUS BULGARICUS) [Concomitant]
  9. HYDROXYZINE HCL [Concomitant]
  10. LIBRAX [Concomitant]
  11. CONJUGATED ESTROGENS [Concomitant]
  12. CALCET (CALCIUM CARBONATE, CALCIUM GLUCONATE, CALCIUM LACTATE, ERGOCAL [Concomitant]
  13. DIMETICONE ACTIVATED (SIMETICONE) [Concomitant]
  14. POTASSIUM CHLORIDE [Concomitant]
  15. FUROSEMIDE [Concomitant]
  16. PARACETAMOL (PARACETAMOL) [Concomitant]
  17. ALL OTHER THERAPEUTIC PRODUCTS (ALL OTHER THERAPEUTIC PRODUCTS) [Concomitant]

REACTIONS (5)
  - BLOOD PRESSURE INCREASED [None]
  - CLOSTRIDIAL INFECTION [None]
  - EYE DISORDER [None]
  - LEUKAEMIA [None]
  - RENAL DISORDER [None]
